FAERS Safety Report 7168023-X (Version None)
Quarter: 2010Q4

REPORT INFORMATION
  Report Type: 
  Country: None (occurrence: None)
  Receive Date: 20101216
  Receipt Date: 20101130
  Transmission Date: 20110411
  Serious: No
  Sender: FDA-Public Use
  Company Number: US-B.I. PHARMACEUTICALS,INC./RIDGEFIELD-2010-BP-13519BP

PATIENT
  Sex: Female

DRUGS (1)
  1. ATROVENT [Suspect]
     Route: 045
     Dates: start: 20100101, end: 20100101

REACTIONS (1)
  - MANIA [None]
